FAERS Safety Report 16859627 (Version 2)
Quarter: 2019Q4

REPORT INFORMATION
  Report Type: Report from Study
  Country: US (occurrence: US)
  Receive Date: 20190927
  Receipt Date: 20191010
  Transmission Date: 20200122
  Serious: Yes (Hospitalization, Other)
  Sender: FDA-Public Use
  Company Number: US-EMD SERONO-9118087

PATIENT
  Age: 49 Year
  Sex: Male

DRUGS (2)
  1. MAVENCLAD [Suspect]
     Active Substance: CLADRIBINE
     Dosage: YEAR ONE MONTH TWO THERAPY
     Route: 048
     Dates: start: 20190827, end: 20190830
  2. MAVENCLAD [Suspect]
     Active Substance: CLADRIBINE
     Indication: MULTIPLE SCLEROSIS
     Dosage: YEAR ONE MONTH ONE THERAPY
     Route: 048
     Dates: start: 20190801

REACTIONS (9)
  - Genital injury [Recovering/Resolving]
  - Decreased appetite [Recovering/Resolving]
  - Genital blister [Recovering/Resolving]
  - Multiple sclerosis relapse [Recovering/Resolving]
  - Pain [Recovering/Resolving]
  - Asthenia [Recovering/Resolving]
  - Headache [Recovering/Resolving]
  - Urinary tract infection [Recovering/Resolving]
  - Scrotal infection [Recovering/Resolving]

NARRATIVE: CASE EVENT DATE: 20190921
